FAERS Safety Report 12795490 (Version 16)
Quarter: 2019Q1

REPORT INFORMATION
  Report Type: Spontaneous
  Country: US (occurrence: US)
  Receive Date: 20160929
  Receipt Date: 20190325
  Transmission Date: 20190417
  Serious: Yes (Hospitalization, Disabling)
  Sender: FDA-Public Use
  Company Number: US-ACTELION-A-US2016-142642

PATIENT
  Age: 88 Year
  Sex: Female

DRUGS (19)
  1. POTASSIUM [Concomitant]
     Active Substance: POTASSIUM
  2. OMEPRAZOLE. [Concomitant]
     Active Substance: OMEPRAZOLE
  3. SYMBICORT [Concomitant]
     Active Substance: BUDESONIDE\FORMOTEROL FUMARATE DIHYDRATE
  4. ADEMPAS [Suspect]
     Active Substance: RIOCIGUAT
     Dosage: 1 MG, BID
     Route: 048
  5. SPIRIVA [Concomitant]
     Active Substance: TIOTROPIUM BROMIDE MONOHYDRATE
  6. OPSUMIT [Suspect]
     Active Substance: MACITENTAN
     Indication: PULMONARY ARTERIAL HYPERTENSION
     Dosage: 10 MG, QD
     Route: 048
     Dates: start: 20160524
  7. TRAVATAN Z [Concomitant]
     Active Substance: TRAVOPROST
  8. SINGULAIR [Concomitant]
     Active Substance: MONTELUKAST SODIUM
  9. ASPIRIN. [Concomitant]
     Active Substance: ASPIRIN
  10. GABAPENTIN. [Concomitant]
     Active Substance: GABAPENTIN
  11. DILTIAZEM CD [Concomitant]
     Active Substance: DILTIAZEM
  12. DIGOXIN. [Concomitant]
     Active Substance: DIGOXIN
  13. OXYGEN. [Concomitant]
     Active Substance: OXYGEN
  14. BUMEX [Concomitant]
     Active Substance: BUMETANIDE
     Dosage: UNK
  15. MULTIVITAMIN [Concomitant]
     Active Substance: VITAMINS
  16. METHYLPREDNISOLONE. [Concomitant]
     Active Substance: METHYLPREDNISOLONE
  17. ADEMPAS [Suspect]
     Active Substance: RIOCIGUAT
     Indication: PRODUCT USED FOR UNKNOWN INDICATION
     Dosage: 1 MG, TID
     Route: 048
  18. ZOLOFT [Concomitant]
     Active Substance: SERTRALINE HYDROCHLORIDE
  19. VITAMIN B6 [Concomitant]
     Active Substance: PYRIDOXINE HYDROCHLORIDE

REACTIONS (27)
  - Herpes zoster [Recovered/Resolved]
  - Tremor [Recovered/Resolved]
  - Dry throat [Unknown]
  - Dysuria [Unknown]
  - Dyspepsia [Unknown]
  - Wheezing [Unknown]
  - Hypotension [Not Recovered/Not Resolved]
  - Anxiety [Recovered/Resolved]
  - Fungal infection [Unknown]
  - Urine viscosity abnormal [Unknown]
  - Dyspnoea [Unknown]
  - Blood glucose increased [Unknown]
  - Unevaluable event [Unknown]
  - Fatigue [Not Recovered/Not Resolved]
  - Malaise [Not Recovered/Not Resolved]
  - Nasopharyngitis [Unknown]
  - Oedema [Not Recovered/Not Resolved]
  - Hypersensitivity [Unknown]
  - Feeling abnormal [Not Recovered/Not Resolved]
  - Feeling cold [Recovered/Resolved]
  - Product dose omission [Unknown]
  - Cardiac failure [Recovering/Resolving]
  - Dizziness [Unknown]
  - Pruritus [Unknown]
  - Flushing [Unknown]
  - Somnolence [Not Recovered/Not Resolved]
  - Swelling [Unknown]

NARRATIVE: CASE EVENT DATE: 20160915
